FAERS Safety Report 8996073 (Version 1)
Quarter: 2013Q1

REPORT INFORMATION
  Report Type: Spontaneous
  Country: US (occurrence: US)
  Receive Date: 20130103
  Receipt Date: 20130103
  Transmission Date: 20140127
  Serious: No
  Sender: FDA-Public Use
  Company Number: US-ABBOTT-12P-163-0929251-00

PATIENT
  Age: 61 Year
  Sex: Female
  Weight: 72.64 kg

DRUGS (5)
  1. SYNTHROID [Suspect]
     Indication: HYPOTHYROIDISM
     Dates: start: 201201
  2. UNKNOWN MEDICATION [Concomitant]
     Indication: ANTIDEPRESSANT THERAPY
  3. UNKNOWN MEDICATION [Concomitant]
     Indication: OESTROGEN REPLACEMENT THERAPY
  4. UNKNOWN MEDICATION [Concomitant]
     Indication: RESTLESS LEGS SYNDROME
  5. UNKNOWN MEDICATION [Concomitant]
     Indication: INSOMNIA

REACTIONS (1)
  - Alopecia [None]
